FAERS Safety Report 17223275 (Version 1)
Quarter: 2020Q1

REPORT INFORMATION
  Report Type: Spontaneous
  Country: SE (occurrence: SE)
  Receive Date: 20200102
  Receipt Date: 20200102
  Transmission Date: 20200409
  Serious: Yes (Hospitalization)
  Sender: FDA-Public Use
  Company Number: SE-TEVA-2019-SE-1160477

PATIENT
  Age: 32 Year
  Sex: Female

DRUGS (8)
  1. QUETIAPINE. [Suspect]
     Active Substance: QUETIAPINE
     Dosage: 50 UNKNOWN STRENGTH
     Route: 048
     Dates: start: 201904, end: 201904
  2. PROPAVAN [Suspect]
     Active Substance: PROPIOMAZINE
     Dosage: 50 ST
     Route: 048
     Dates: start: 201904, end: 201904
  3. LAMOTRIGINE. [Suspect]
     Active Substance: LAMOTRIGINE
     Dosage: UNKNOWN STRENGTH
     Route: 048
     Dates: start: 201904, end: 201904
  4. ELVANSE [Suspect]
     Active Substance: LISDEXAMFETAMINE DIMESYLATE
     Route: 048
     Dates: start: 201904, end: 201904
  5. ZOPICLONE [Suspect]
     Active Substance: ZOPICLONE
     Dosage: 50 ST
     Route: 048
     Dates: start: 201904, end: 201904
  6. DULOXETINE. [Suspect]
     Active Substance: DULOXETINE
     Route: 048
     Dates: start: 201904, end: 201904
  7. ZOLPIDEM [Suspect]
     Active Substance: ZOLPIDEM TARTRATE
     Dosage: 60 ST
     Route: 048
     Dates: start: 201904, end: 201904
  8. ANKSILON [Suspect]
     Active Substance: BUSPIRONE HYDROCHLORIDE
     Dosage: 30
     Route: 048
     Dates: start: 201904, end: 201904

REACTIONS (3)
  - Depressed level of consciousness [Unknown]
  - Intentional overdose [Unknown]
  - Suicide attempt [Unknown]

NARRATIVE: CASE EVENT DATE: 201904
